FAERS Safety Report 10016250 (Version 2)
Quarter: 2014Q1

REPORT INFORMATION
  Report Type: Spontaneous
  Country: US (occurrence: US)
  Receive Date: 20140317
  Receipt Date: 20140325
  Transmission Date: 20141002
  Serious: No
  Sender: FDA-Public Use
  Company Number: US-009507513-1403USA005323

PATIENT
  Age: 68 Year
  Sex: Female

DRUGS (1)
  1. OXYTROL FOR WOMEN [Suspect]
     Indication: HYPERTONIC BLADDER
     Dosage: 1 DF, UNKNOWN
     Route: 062
     Dates: start: 20140220, end: 20140223

REACTIONS (5)
  - Urticaria [Recovered/Resolved]
  - Paraesthesia [Recovering/Resolving]
  - Skin hypertrophy [Recovering/Resolving]
  - Erythema [Recovering/Resolving]
  - Rash [Recovered/Resolved]
